FAERS Safety Report 9163112 (Version 1)
Quarter: 2013Q1

REPORT INFORMATION
  Report Type: Spontaneous
  Country: US (occurrence: None)
  Receive Date: 20130225
  Receipt Date: 20130225
  Transmission Date: 20140127
  Serious: Yes (Other)
  Sender: FDA-Public Use
  Company Number: 2013SA014712

PATIENT
  Sex: Female

DRUGS (1)
  1. ICY HOT NO MESS [Suspect]
     Indication: PAIN
     Dates: start: 20121023, end: 20121024

REACTIONS (2)
  - Thermal burn [None]
  - Discomfort [None]
